APPROVED DRUG PRODUCT: SIMVASTATIN
Active Ingredient: SIMVASTATIN
Strength: 10MG
Dosage Form/Route: TABLET;ORAL
Application: A200895 | Product #002 | TE Code: AB
Applicant: HETERO LABS LTD UNIT III
Approved: Nov 25, 2014 | RLD: No | RS: No | Type: RX